FAERS Safety Report 14311171 (Version 1)
Quarter: 2017Q4

REPORT INFORMATION
  Report Type: Spontaneous
  Country: US (occurrence: US)
  Receive Date: 20171221
  Receipt Date: 20171221
  Transmission Date: 20180321
  Serious: No
  Sender: FDA-Public Use
  Company Number: US-NOVEN PHARMACEUTICALS, INC.-US2016002924

PATIENT

DRUGS (2)
  1. MINIVELLE [Suspect]
     Active Substance: ESTRADIOL
     Indication: HYSTERECTOMY
     Dosage: 0.075 MG, UNKNOWN
     Route: 062
     Dates: start: 2006
  2. MINIVELLE [Suspect]
     Active Substance: ESTRADIOL
     Dosage: 0.05 MG, UNKNOWN
     Route: 062

REACTIONS (2)
  - Osteopenia [Unknown]
  - Headache [Recovered/Resolved]
